FAERS Safety Report 13711918 (Version 1)
Quarter: 2017Q3

REPORT INFORMATION
  Report Type: Spontaneous
  Country: US (occurrence: US)
  Receive Date: 20170703
  Receipt Date: 20170703
  Transmission Date: 20171127
  Serious: Yes (Hospitalization)
  Sender: FDA-Public Use
  Company Number: None

PATIENT
  Sex: Male
  Weight: 71.1 kg

DRUGS (2)
  1. PROLIXIN [Suspect]
     Active Substance: FLUPHENAZINE HYDROCHLORIDE
     Indication: SCHIZOPHRENIA
     Dosage: ?          QUANTITY:1 INJECTION(S);OTHER FREQUENCY:EVERY TWO WEEKS;?
     Route: 058
  2. BENZYLTROPINE [Concomitant]

REACTIONS (6)
  - Tinnitus [None]
  - Fatigue [None]
  - Memory impairment [None]
  - Head banging [None]
  - Pain [None]
  - Muscle spasms [None]
